FAERS Safety Report 13790019 (Version 1)
Quarter: 2017Q3

REPORT INFORMATION
  Report Type: Spontaneous
  Country: US (occurrence: US)
  Receive Date: 20170725
  Receipt Date: 20170725
  Transmission Date: 20171127
  Serious: No
  Sender: FDA-Public Use
  Company Number: US-PFIZER INC-2017322003

PATIENT
  Age: 79 Year
  Sex: Female
  Weight: 61.23 kg

DRUGS (2)
  1. KLONOPIN [Concomitant]
     Active Substance: CLONAZEPAM
  2. LYRICA [Suspect]
     Active Substance: PREGABALIN
     Indication: PAIN
     Dosage: 50 MG, 1X/DAY
     Dates: start: 20170619, end: 201706

REACTIONS (5)
  - Intentional product use issue [Unknown]
  - Joint swelling [Recovering/Resolving]
  - Peripheral swelling [Recovering/Resolving]
  - Pain in extremity [Recovering/Resolving]
  - Arthralgia [Recovering/Resolving]

NARRATIVE: CASE EVENT DATE: 20170619
